FAERS Safety Report 7281663-2 (Version None)
Quarter: 2011Q1

REPORT INFORMATION
  Report Type: 
  Country: None (occurrence: None)
  Receive Date: 20110208
  Receipt Date: 20110128
  Transmission Date: 20110831
  Serious: Yes (Hospitalization, Other)
  Sender: FDA-Public Use
  Company Number: IT-PFIZER INC-2011026913

PATIENT
  Age: 65 Year
  Sex: Male

DRUGS (3)
  1. CORDARONE [Suspect]
     Indication: ATRIAL FIBRILLATION
     Dosage: UNKNOWN;DAILY
     Route: 048
  2. SIMVASTATIN [Suspect]
     Indication: HYPERCHOLESTEROLAEMIA
     Dosage: 10 MILLIGRAM(S);DAILY
     Route: 048
  3. DRONEDARONE [Suspect]
     Indication: ATRIAL FIBRILLATION
     Dosage: 400 MILLIGRAM(S);TWICE A DAY
     Route: 048

REACTIONS (7)
  - ASTHENIA [None]
  - GASTROINTESTINAL DISORDER [None]
  - JAUNDICE [None]
  - THYROID DISORDER [None]
  - LIVER INJURY [None]
  - TRANSAMINASES INCREASED [None]
  - NAUSEA [None]
